FAERS Safety Report 17401791 (Version 3)
Quarter: 2020Q1

REPORT INFORMATION
  Report Type: Spontaneous
  Country: US (occurrence: US)
  Receive Date: 20200211
  Receipt Date: 20200311
  Transmission Date: 20200409
  Serious: Yes (Other)
  Sender: FDA-Public Use
  Company Number: US-AMGEN-USASP2020021287

PATIENT
  Age: 49 Year
  Sex: Male
  Weight: 112.02 kg

DRUGS (1)
  1. REPATHA [Suspect]
     Active Substance: EVOLOCUMAB
     Indication: DYSLIPIDAEMIA
     Dosage: 140 MILLIGRAM PER MILLILITRE, Q2WK
     Route: 058
     Dates: start: 20190805, end: 20191130

REACTIONS (2)
  - Pain of skin [Not Recovered/Not Resolved]
  - Blister [Not Recovered/Not Resolved]

NARRATIVE: CASE EVENT DATE: 20191110
